FAERS Safety Report 9246660 (Version 2)
Quarter: 2013Q2

REPORT INFORMATION
  Report Type: Spontaneous
  Country: US (occurrence: US)
  Receive Date: 20130422
  Receipt Date: 20130515
  Transmission Date: 20140414
  Serious: Yes (Hospitalization, Other)
  Sender: FDA-Public Use
  Company Number: US-TEVA-399675USA

PATIENT
  Age: 35 Year
  Sex: Female
  Weight: 81.72 kg

DRUGS (9)
  1. PROAIR HFA [Suspect]
     Indication: ASTHMA
     Route: 055
  2. CARISOPRODOL [Concomitant]
     Indication: NEUROPATHY PERIPHERAL
  3. CARISOPRODOL [Concomitant]
     Indication: BACK PAIN
  4. METHADONE [Concomitant]
     Indication: NEUROPATHY PERIPHERAL
  5. METHADONE [Concomitant]
     Indication: BACK PAIN
  6. XANAX [Concomitant]
     Indication: ANXIETY
  7. AMBIEN [Concomitant]
     Indication: INSOMNIA
  8. ADVAIR [Concomitant]
  9. SINGULAIR [Concomitant]
     Indication: HYPERSENSITIVITY

REACTIONS (3)
  - Pneumonia [Recovered/Resolved]
  - Bronchitis [Unknown]
  - Wrong technique in drug usage process [Recovered/Resolved]
